FAERS Safety Report 7099232-6 (Version None)
Quarter: 2010Q4

REPORT INFORMATION
  Report Type: 
  Country: None (occurrence: None)
  Receive Date: 20101112
  Receipt Date: 20101101
  Transmission Date: 20110411
  Serious: Yes (Hospitalization)
  Sender: FDA-Public Use
  Company Number: JP-JNJFOC-20100906014

PATIENT
  Age: 56 Year
  Sex: Female
  Weight: 44 kg

DRUGS (9)
  1. RISPERDAL CONSTA [Suspect]
     Indication: SCHIZOPHRENIA
     Route: 030
  2. CONTOMIN [Concomitant]
     Route: 048
  3. DEPAKENE [Concomitant]
     Route: 048
  4. MAGNESIUM OXIDE [Concomitant]
     Indication: CONSTIPATION
     Route: 048
  5. SENNOSIDE [Concomitant]
     Indication: CONSTIPATION
     Route: 048
  6. PENTOBARBITAL CAP [Concomitant]
     Route: 048
  7. LEVOMEPROMAZINE MALEATE [Concomitant]
     Route: 048
  8. ACTOS [Concomitant]
     Indication: DIABETES MELLITUS
     Route: 048
  9. METFORMIN HCL [Concomitant]
     Indication: DIABETES MELLITUS
     Route: 048

REACTIONS (2)
  - HYPERPROLACTINAEMIA [None]
  - HYPONATRAEMIA [None]
